FAERS Safety Report 4670824-4 (Version None)
Quarter: 2005Q2

REPORT INFORMATION
  Report Type: 
  Country: None (occurrence: None)
  Receive Date: 20050523
  Receipt Date: 20050218
  Transmission Date: 20051028
  Serious: Yes (Life-Threatening, Hospitalization, Disabling)
  Sender: FDA-Public Use
  Company Number: DE-MERCK-0502DEU00137

PATIENT
  Age: 65 Year
  Sex: Male

DRUGS (6)
  1. VIOXX [Suspect]
     Indication: OSTEOARTHRITIS
     Route: 048
     Dates: start: 20000705, end: 20000918
  2. VIOXX [Suspect]
     Route: 048
     Dates: start: 20010501, end: 20040101
  3. VIOXX [Suspect]
     Route: 048
     Dates: start: 20000705, end: 20000918
  4. VIOXX [Suspect]
     Route: 048
     Dates: start: 20010501, end: 20040101
  5. RABEPRAZOLE SODIUM [Concomitant]
     Indication: GASTRITIS
     Route: 048
  6. RABEPRAZOLE SODIUM [Concomitant]
     Indication: GASTROOESOPHAGEAL REFLUX DISEASE
     Route: 048

REACTIONS (4)
  - ARRHYTHMIA [None]
  - DEEP VEIN THROMBOSIS [None]
  - HYPERTENSION [None]
  - PULMONARY EMBOLISM [None]
